FAERS Safety Report 8780094 (Version 1)
Quarter: 2012Q4

REPORT INFORMATION
  Report Type: Spontaneous
  Country: US (occurrence: None)
  Receive Date: 20120831
  Receipt Date: 20120831
  Transmission Date: 20130627
  Serious: Yes (Death, Life-Threatening, Hospitalization, Disabling, Other)
  Sender: FDA-Public Use
  Company Number: None

PATIENT
  Sex: Male
  Weight: 71.67 kg

DRUGS (1)
  1. AMIODARONE HCL [Suspect]
     Dates: start: 200805, end: 20090502

REACTIONS (9)
  - Pulmonary fibrosis [None]
  - Hyperthyroidism [None]
  - Weight decreased [None]
  - Asthenia [None]
  - Fall [None]
  - Head injury [None]
  - Amnesia [None]
  - Impaired reasoning [None]
  - Cerebral thrombosis [None]
